FAERS Safety Report 6965387-4 (Version None)
Quarter: 2010Q3

REPORT INFORMATION
  Report Type: 
  Country: None (occurrence: None)
  Receive Date: 20100903
  Receipt Date: 20100831
  Transmission Date: 20110219
  Serious: Yes (Hospitalization)
  Sender: FDA-Public Use
  Company Number: A0875755A

PATIENT
  Age: 68 Year
  Sex: Male

DRUGS (7)
  1. ADVAIR DISKUS 100/50 [Suspect]
     Indication: CHRONIC OBSTRUCTIVE PULMONARY DISEASE
     Dosage: 1PUFF TWICE PER DAY
     Route: 055
  2. ISOSORBIDE [Concomitant]
  3. AMLODIPINE [Concomitant]
  4. PROTONIX [Concomitant]
  5. PLAVIX [Concomitant]
  6. METOPROLOL TARTRATE [Concomitant]
  7. LISINOPRIL [Concomitant]

REACTIONS (3)
  - DYSPNOEA [None]
  - LOSS OF CONSCIOUSNESS [None]
  - RESPIRATORY ARREST [None]
